FAERS Safety Report 6176800-7 (Version None)
Quarter: 2009Q2

REPORT INFORMATION
  Report Type: 
  Country: None (occurrence: None)
  Receive Date: 20090501
  Receipt Date: 20090424
  Transmission Date: 20091009
  Serious: Yes (Hospitalization)
  Sender: FDA-Public Use
  Company Number: JP-WYE-H05383108

PATIENT
  Age: 78 Year
  Sex: Male

DRUGS (1)
  1. AMIODARONE [Suspect]
     Indication: VENTRICULAR TACHYCARDIA
     Dosage: UNKNOWN
     Route: 048
     Dates: start: 20060101, end: 20080301

REACTIONS (2)
  - ORGANISING PNEUMONIA [None]
  - SINUS ARREST [None]
